FAERS Safety Report 9445985 (Version 1)
Quarter: 2013Q3

REPORT INFORMATION
  Report Type: Report from Study
  Country: US (occurrence: US)
  Receive Date: 20130807
  Receipt Date: 20130807
  Transmission Date: 20140515
  Serious: Yes (Hospitalization)
  Sender: FDA-Public Use
  Company Number: US-ABBOTT-13P-163-1126562-00

PATIENT
  Age: 65 Year
  Sex: Female
  Weight: 70.37 kg

DRUGS (13)
  1. HUMIRA [Suspect]
     Indication: CROHN^S DISEASE
     Dates: start: 2008, end: 201203
  2. HUMIRA [Suspect]
     Dates: start: 201205
  3. MULTIVITAMIN [Concomitant]
     Indication: VITAMIN SUPPLEMENTATION
  4. CALCIUM WITH VITAMIN D [Concomitant]
     Indication: MINERAL SUPPLEMENTATION
  5. FLAX SEED OIL [Concomitant]
     Indication: SUPPLEMENTATION THERAPY
  6. OMEGA 3 [Concomitant]
     Indication: SUPPLEMENTATION THERAPY
  7. LISINOPRIL [Concomitant]
     Indication: HYPERTENSION
  8. FOLIC ACID [Concomitant]
     Indication: VITAMIN SUPPLEMENTATION
  9. LIDODERM PATCH [Concomitant]
     Indication: PAIN
  10. VITAMIN B 12 [Concomitant]
     Indication: VITAMIN B COMPLEX DEFICIENCY
     Route: 030
  11. TRAMADOL [Concomitant]
     Indication: PAIN
  12. DOXEPIN [Concomitant]
     Indication: INSOMNIA
  13. CLONOPIN [Concomitant]
     Indication: ANXIETY

REACTIONS (2)
  - Intestinal obstruction [Recovered/Resolved]
  - Vomiting [Recovered/Resolved]
